FAERS Safety Report 6447622-4 (Version None)
Quarter: 2009Q4

REPORT INFORMATION
  Report Type: 
  Country: None (occurrence: None)
  Receive Date: 20091119
  Receipt Date: 20090831
  Transmission Date: 20100525
  Serious: Yes (Other)
  Sender: FDA-Public Use
  Company Number: US-AMGEN-KDL361292

PATIENT
  Sex: Female
  Weight: 61 kg

DRUGS (5)
  1. ENBREL [Suspect]
     Indication: RHEUMATOID ARTHRITIS
     Route: 058
     Dates: start: 20090301
  2. PLAQUENIL [Concomitant]
     Dates: start: 20050608
  3. METHOTREXATE [Concomitant]
     Route: 048
     Dates: start: 20090504
  4. LEUCOVORIN CALCIUM [Concomitant]
     Dates: start: 20090504
  5. ARAVA [Concomitant]
     Dates: start: 20080507, end: 20090504

REACTIONS (2)
  - CHEST DISCOMFORT [None]
  - DYSPNOEA EXERTIONAL [None]
